FAERS Safety Report 8508658-2 (Version None)
Quarter: 2012Q3

REPORT INFORMATION
  Report Type: 
  Country: None (occurrence: None)
  Receive Date: 20120713
  Receipt Date: 20120710
  Transmission Date: 20120928
  Serious: Yes (Other)
  Sender: FDA-Public Use
  Company Number: BR-PFIZER INC-2012166097

PATIENT
  Sex: Male

DRUGS (1)
  1. DOSTINEX [Suspect]
     Dosage: 0.5 MG, UNK
     Route: 048
     Dates: start: 19950101

REACTIONS (2)
  - PITUITARY TUMOUR [None]
  - DISEASE RECURRENCE [None]
